FAERS Safety Report 21324390 (Version 2)
Quarter: 2022Q3

REPORT INFORMATION
  Report Type: Spontaneous
  Country: US (occurrence: US)
  Receive Date: 20220912
  Receipt Date: 20220920
  Transmission Date: 20221026
  Serious: Yes (Death, Life-Threatening, Hospitalization, Other)
  Sender: FDA-Public Use
  Company Number: US-MLMSERVICE-20220826-3762061-1

PATIENT
  Age: 42 Year
  Sex: Male

DRUGS (1)
  1. PROPOFOL [Suspect]
     Active Substance: PROPOFOL
     Indication: Sedation
     Dosage: 40 UG/KG (FREQ:1 MIN)

REACTIONS (3)
  - Hypertriglyceridaemia [Fatal]
  - Propofol infusion syndrome [Fatal]
  - Thrombosis in device [Fatal]
